FAERS Safety Report 4757277-2 (Version None)
Quarter: 2005Q3

REPORT INFORMATION
  Report Type: 
  Country: None (occurrence: None)
  Receive Date: 20050826
  Receipt Date: 20050811
  Transmission Date: 20060218
  Serious: Yes (Hospitalization)
  Sender: FDA-Public Use
  Company Number: CIP05001910

PATIENT
  Age: 88 Year
  Sex: Female

DRUGS (6)
  1. FURADANTINE(NITROFURANTOIN MACROCRYSTALS) CAPSULES, 50MG [Suspect]
     Indication: URINARY TRACT INFECTION
     Dosage: 150 MG DAILY, ORAL
     Route: 048
     Dates: start: 20041006, end: 20041127
  2. ATACAND [Concomitant]
  3. KARDEGIC /FRA/ (ACETYLSALICYLATE LYSINE) [Concomitant]
  4. LIPANTHYL - SLOW RELEASE (FENOFIBRATE) [Concomitant]
  5. EFFEXOR [Concomitant]
  6. OMEPRAZOLE [Concomitant]

REACTIONS (8)
  - ANOREXIA [None]
  - ARRHYTHMIA [None]
  - ATRIAL FIBRILLATION [None]
  - CARDIAC FAILURE [None]
  - DEPRESSION [None]
  - IMPAIRED SELF-CARE [None]
  - INTERSTITIAL LUNG DISEASE [None]
  - WEIGHT DECREASED [None]
